FAERS Safety Report 4830167-2 (Version None)
Quarter: 2005Q4

REPORT INFORMATION
  Report Type: 
  Country: None (occurrence: None)
  Receive Date: 20051117
  Receipt Date: 20050929
  Transmission Date: 20060501
  Serious: Yes (Hospitalization, Other)
  Sender: FDA-Public Use
  Company Number: US-MERCK-0510USA00548

PATIENT
  Age: 54 Year
  Sex: Male
  Weight: 134 kg

DRUGS (19)
  1. VIOXX [Suspect]
     Indication: SPONDYLITIS
     Route: 048
     Dates: start: 19990101, end: 20040101
  2. SOMA [Concomitant]
     Route: 065
  3. INSULIN [Concomitant]
     Route: 065
  4. HUMULIN [Concomitant]
     Route: 065
  5. PROZAC [Concomitant]
     Route: 065
  6. CELEBREX [Concomitant]
     Route: 065
  7. VICODIN [Concomitant]
     Route: 065
  8. SYNTHROID [Concomitant]
     Route: 065
  9. LOTENSIN [Concomitant]
     Route: 065
  10. ELAVIL [Concomitant]
     Route: 065
  11. ZOCOR [Concomitant]
     Route: 048
  12. PREVACID [Concomitant]
     Route: 065
  13. MAVIK [Concomitant]
     Route: 065
  14. METHADONE HYDROCHLORIDE [Concomitant]
     Route: 065
  15. DIGOXIN [Concomitant]
     Route: 065
  16. NEURONTIN [Concomitant]
     Route: 065
  17. HYDROCODONE BITARTRATE [Concomitant]
     Route: 048
  18. K-DUR 10 [Concomitant]
     Route: 065
  19. ZOLOFT [Concomitant]
     Route: 065

REACTIONS (13)
  - ATRIAL FIBRILLATION [None]
  - BACK DISORDER [None]
  - CARDIAC DISORDER [None]
  - CARDIAC FAILURE CONGESTIVE [None]
  - CHEST PAIN [None]
  - FLANK PAIN [None]
  - HAEMATURIA [None]
  - HEADACHE [None]
  - MITRAL VALVE INCOMPETENCE [None]
  - MYOCARDIAL INFARCTION [None]
  - PALPITATIONS [None]
  - SKIN ULCER [None]
  - THROMBOSIS [None]
